FAERS Safety Report 7565671-X (Version None)
Quarter: 2011Q2

REPORT INFORMATION
  Report Type: 
  Country: None (occurrence: None)
  Receive Date: 20110623
  Receipt Date: 20110620
  Transmission Date: 20111010
  Serious: Yes (Hospitalization)
  Sender: FDA-Public Use
  Company Number: AT-CEPHALON-2011003072

PATIENT
  Sex: Female

DRUGS (6)
  1. BENDAMUSTINE HCL [Suspect]
     Route: 042
     Dates: start: 20101011
  2. CONCOR PLUS [Concomitant]
  3. BISOPROLOL FUMARATE [Concomitant]
  4. RITUXIMAB [Suspect]
     Route: 042
     Dates: start: 20101011
  5. ZOLPIDEM TARTRATE [Concomitant]
  6. RABEPRAZOLE SODIUM [Concomitant]

REACTIONS (3)
  - NEUTROPENIA [None]
  - CYSTITIS [None]
  - GASTROENTERITIS ESCHERICHIA COLI [None]
